FAERS Safety Report 7460863-2 (Version None)
Quarter: 2011Q2

REPORT INFORMATION
  Report Type: 
  Country: None (occurrence: None)
  Receive Date: 20110505
  Receipt Date: 20110428
  Transmission Date: 20111010
  Serious: Yes (Hospitalization)
  Sender: FDA-Public Use
  Company Number: US-AMGEN-USASP2011022182

PATIENT
  Sex: Male

DRUGS (2)
  1. XGEVA [Suspect]
     Indication: LUNG ADENOCARCINOMA
     Dates: start: 20110317
  2. THYROID TAB [Concomitant]

REACTIONS (2)
  - HYPOCALCAEMIA [None]
  - FEBRILE NEUTROPENIA [None]
